FAERS Safety Report 12285855 (Version 1)
Quarter: 2016Q2

REPORT INFORMATION
  Report Type: Spontaneous
  Country: US (occurrence: US)
  Receive Date: 20160420
  Receipt Date: 20160420
  Transmission Date: 20160815
  Serious: Yes (Other)
  Sender: FDA-Public Use
  Company Number: US-GLAXOSMITHKLINE-US2016053985

PATIENT
  Age: 60 Year
  Sex: Male

DRUGS (7)
  1. FAMOTIDINE. [Concomitant]
     Active Substance: FAMOTIDINE
  2. GAS-X [Concomitant]
     Active Substance: DIMETHICONE
  3. VALIUM [Concomitant]
     Active Substance: DIAZEPAM
  4. XANAX [Concomitant]
     Active Substance: ALPRAZOLAM
  5. ADVAIR DISKUS [Suspect]
     Active Substance: FLUTICASONE PROPIONATE\SALMETEROL XINAFOATE
     Dosage: 1 PUFF(S), QD
     Route: 055
     Dates: end: 20160413
  6. HYDROCHLOROTHIAZIDE AND LISINOPRIL [Concomitant]
     Active Substance: HYDROCHLOROTHIAZIDE\LISINOPRIL
  7. ADVAIR DISKUS [Suspect]
     Active Substance: FLUTICASONE PROPIONATE\SALMETEROL XINAFOATE
     Indication: CHRONIC OBSTRUCTIVE PULMONARY DISEASE
     Dosage: 1 PUFF(S), BID
     Route: 055
     Dates: start: 201504

REACTIONS (18)
  - Weight increased [Not Recovered/Not Resolved]
  - Gait disturbance [Not Recovered/Not Resolved]
  - Waist circumference increased [Not Recovered/Not Resolved]
  - Eructation [Recovering/Resolving]
  - Sleep apnoea syndrome [Unknown]
  - Overdose [Recovered/Resolved]
  - Device use error [Recovered/Resolved]
  - Underdose [Recovered/Resolved]
  - Feeling hot [Unknown]
  - Trigger finger [Not Recovered/Not Resolved]
  - Abdominal distension [Unknown]
  - Drug dose omission [Recovered/Resolved]
  - Drug effect incomplete [Unknown]
  - Intentional product use issue [Recovered/Resolved]
  - Rheumatoid arthritis [Not Recovered/Not Resolved]
  - Incorrect route of drug administration [Recovered/Resolved]
  - Flatulence [Recovering/Resolving]
  - Nausea [Unknown]

NARRATIVE: CASE EVENT DATE: 201602
